FAERS Safety Report 24351527 (Version 1)
Quarter: 2024Q3

REPORT INFORMATION
  Report Type: Report from Study
  Country: US (occurrence: US)
  Receive Date: 20240923
  Receipt Date: 20240923
  Transmission Date: 20241017
  Serious: No
  Sender: ROCHE
  Company Number: US-ROCHE-3552267

PATIENT
  Age: 57 Year
  Sex: Female
  Weight: 52.2 kg

DRUGS (13)
  1. HERCEPTIN [Suspect]
     Active Substance: TRASTUZUMAB
     Indication: Breast cancer female
     Dosage: 1 OF 4 CYCLE?AFTER LOADING DOSE OF 4 MG/KG
     Route: 042
     Dates: start: 20240315
  2. HERCEPTIN [Suspect]
     Active Substance: TRASTUZUMAB
     Indication: Oestrogen receptor assay positive
  3. PERJETA [Suspect]
     Active Substance: PERTUZUMAB
     Indication: Breast cancer female
     Dosage: 1 OF 4 CYCLE?AFTER LOADING DOSE OF 4 MG/KG
     Route: 042
     Dates: start: 20240315
  4. PERJETA [Suspect]
     Active Substance: PERTUZUMAB
     Indication: Oestrogen receptor assay positive
  5. CALCIUM\CHOLECALCIFEROL\MAGNESIUM [Concomitant]
     Active Substance: CALCIUM\CHOLECALCIFEROL\MAGNESIUM
     Route: 048
  6. DEXAMETHASONE [Concomitant]
     Active Substance: DEXAMETHASONE
     Dates: start: 20240315
  7. LETROZOLE [Concomitant]
     Active Substance: LETROZOLE
  8. VITAMINS [Concomitant]
     Active Substance: VITAMINS
     Route: 048
  9. ZOFRAN [Concomitant]
     Active Substance: ONDANSETRON HYDROCHLORIDE
  10. COMPAZINE [Concomitant]
     Active Substance: PROCHLORPERAZINE MALEATE
  11. ALOXI [Concomitant]
     Active Substance: PALONOSETRON HYDROCHLORIDE
     Dosage: 250 MCG
     Route: 042
  12. TAXOTERE [Concomitant]
     Active Substance: DOCETAXEL
     Route: 042
     Dates: start: 20240315
  13. EMEND [Concomitant]
     Active Substance: APREPITANT
     Route: 042
     Dates: start: 20240315

REACTIONS (3)
  - Blood glucose increased [Unknown]
  - Off label use [Unknown]
  - Off label use [Unknown]
